FAERS Safety Report 5138839-X (Version None)
Quarter: 2006Q4

REPORT INFORMATION
  Report Type: 
  Country: None (occurrence: None)
  Receive Date: 20061030
  Receipt Date: 20060501
  Transmission Date: 20070319
  Serious: No
  Sender: FDA-Public Use
  Company Number: US-GLAXOSMITHKLINE-A0603866A

PATIENT
  Age: 82 Year
  Sex: Female

DRUGS (10)
  1. ADVAIR HFA [Suspect]
     Indication: ASTHMA
     Dosage: 1PUFF TWICE PER DAY
     Route: 055
     Dates: start: 20050101
  2. ALBUTEROL [Concomitant]
  3. GABAPENTIN [Concomitant]
  4. LEVOTHYROXINE SODIUM [Concomitant]
  5. TEMAZEPAM [Concomitant]
  6. FENTANYL TRANSDERMAL SYSTEM [Concomitant]
  7. TUMS [Concomitant]
  8. CALCIUM GLUCONATE [Concomitant]
  9. VITAMIN D [Concomitant]
  10. AREDIA [Concomitant]

REACTIONS (4)
  - DRY EYE [None]
  - DYSPEPSIA [None]
  - EYE INFECTION [None]
  - NAUSEA [None]
